FAERS Safety Report 13612120 (Version 1)
Quarter: 2017Q2

REPORT INFORMATION
  Report Type: Spontaneous
  Country: CN (occurrence: CN)
  Receive Date: 20170605
  Receipt Date: 20170605
  Transmission Date: 20170830
  Serious: Yes (Hospitalization, Other)
  Sender: FDA-Public Use
  Company Number: CN-MYLANLABS-2017M1032843

PATIENT

DRUGS (1)
  1. PROPAFENONE. [Suspect]
     Active Substance: PROPAFENONE
     Indication: PRODUCT USED FOR UNKNOWN INDICATION
     Dosage: 5000 MG, UNK

REACTIONS (5)
  - Suicide attempt [Unknown]
  - Cardiac arrest [Recovered/Resolved]
  - Overdose [Unknown]
  - Hyperkalaemia [Recovered/Resolved]
  - Hypocalcaemia [Recovered/Resolved]
